FAERS Safety Report 25009101 (Version 1)
Quarter: 2025Q1

REPORT INFORMATION
  Report Type: Spontaneous
  Country: ES (occurrence: ES)
  Receive Date: 20250225
  Receipt Date: 20250225
  Transmission Date: 20250409
  Serious: Yes (Other)
  Sender: PFIZER
  Company Number: ES-UCBSA-2025008151

PATIENT
  Sex: Male

DRUGS (10)
  1. LEVETIRACETAM [Suspect]
     Active Substance: LEVETIRACETAM
     Indication: Seizure
  2. OXCARBAZEPINE [Concomitant]
     Active Substance: OXCARBAZEPINE
  3. LACOSAMIDE [Concomitant]
     Active Substance: LACOSAMIDE
  4. TOPIRAMATE [Concomitant]
     Active Substance: TOPIRAMATE
  5. LAMOTRIGINE [Concomitant]
     Active Substance: LAMOTRIGINE
     Dosage: 500 MG, DAILY
  6. VALPROIC ACID [Concomitant]
     Active Substance: VALPROIC ACID
  7. CLONAZEPAM [Concomitant]
     Active Substance: CLONAZEPAM
  8. CLOBAZAM [Concomitant]
     Active Substance: CLOBAZAM
  9. PHENYTOIN [Concomitant]
     Active Substance: PHENYTOIN
  10. PHENOBARBITAL [Concomitant]
     Active Substance: PHENOBARBITAL
     Dosage: 200 MG, DAILY

REACTIONS (1)
  - Seizure [Unknown]
